FAERS Safety Report 9091055 (Version 1)
Quarter: 2013Q1

REPORT INFORMATION
  Report Type: Report from Study
  Country: US (occurrence: US)
  Receive Date: 20130201
  Receipt Date: 20130201
  Transmission Date: 20140127
  Serious: No
  Sender: FDA-Public Use
  Company Number: US-ABBOTT-12P-163-1019267-00

PATIENT
  Sex: Female
  Weight: 68.1 kg

DRUGS (3)
  1. HUMIRA [Suspect]
     Indication: RHEUMATOID ARTHRITIS
     Route: 058
     Dates: start: 2009, end: 20121130
  2. HUMIRA [Suspect]
     Route: 058
     Dates: start: 20121207
  3. HORMONES [Concomitant]
     Indication: PRODUCT USED FOR UNKNOWN INDICATION

REACTIONS (4)
  - Feeling hot [Not Recovered/Not Resolved]
  - Erythema [Recovering/Resolving]
  - Local swelling [Not Recovered/Not Resolved]
  - Pain in extremity [Recovering/Resolving]
